FAERS Safety Report 8472880-4 (Version None)
Quarter: 2012Q2

REPORT INFORMATION
  Report Type: 
  Country: None (occurrence: None)
  Receive Date: 20120627
  Receipt Date: 20120427
  Transmission Date: 20120825
  Serious: No
  Sender: FDA-Public Use
  Company Number: US-MYLANLABS-2012S1008774

PATIENT
  Age: 83 Year
  Sex: Male

DRUGS (1)
  1. OMEPRAZOLE [Suspect]
     Route: 048
     Dates: end: 20120426

REACTIONS (3)
  - GINGIVAL PAIN [None]
  - SENSITIVITY OF TEETH [None]
  - ORAL DISCOMFORT [None]
